FAERS Safety Report 7409083-8 (Version None)
Quarter: 2011Q2

REPORT INFORMATION
  Report Type: 
  Country: None (occurrence: None)
  Receive Date: 20110412
  Receipt Date: 20110407
  Transmission Date: 20111010
  Serious: Yes (Other)
  Sender: FDA-Public Use
  Company Number: US-CEPHALON-2009008896

PATIENT
  Sex: Female
  Weight: 62 kg

DRUGS (1)
  1. PROVIGIL [Suspect]
     Indication: SOMNOLENCE
     Route: 048
     Dates: start: 20090101, end: 20090407

REACTIONS (2)
  - COUGH [None]
  - RIB FRACTURE [None]
